FAERS Safety Report 9493197 (Version 3)
Quarter: 2013Q4

REPORT INFORMATION
  Report Type: Report from Study
  Country: US (occurrence: US)
  Receive Date: 20130902
  Receipt Date: 20131206
  Transmission Date: 20140711
  Serious: Yes (Hospitalization)
  Sender: FDA-Public Use
  Company Number: US-ROCHE-1233711

PATIENT
  Age: 43 Year
  Sex: Female

DRUGS (5)
  1. MYCOPHENOLATE MOFETIL [Suspect]
     Indication: RENAL TRANSPLANT
     Route: 048
  2. MYCOPHENOLATE MOFETIL [Suspect]
     Route: 065
     Dates: start: 20130603
  3. BELATACEPT [Suspect]
     Indication: RENAL TRANSPLANT
     Dosage: DATE OF MOST RECENT DOSE: 02/JUL/2013
     Route: 042
     Dates: start: 20130409
  4. ALEMTUZUMAB [Concomitant]
     Route: 065
     Dates: start: 20130409
  5. PREDNISONE [Concomitant]
     Route: 065
     Dates: start: 20130409, end: 20130430

REACTIONS (5)
  - Wound infection staphylococcal [Unknown]
  - Abdominal pain [Unknown]
  - Transplant rejection [Unknown]
  - Nausea [Unknown]
  - Vomiting [Unknown]
